FAERS Safety Report 11712300 (Version 1)
Quarter: 2015Q4

REPORT INFORMATION
  Report Type: Spontaneous
  Country: US (occurrence: US)
  Receive Date: 20151104
  Receipt Date: 20151104
  Transmission Date: 20160304
  Serious: No
  Sender: FDA-Public Use
  Company Number: US-ELI_LILLY_AND_COMPANY-US201107001983

PATIENT
  Age: 73 Year
  Sex: Female

DRUGS (1)
  1. FORTEO [Suspect]
     Active Substance: TERIPARATIDE
     Indication: OSTEOPOROSIS
     Dosage: 20 UG, QD

REACTIONS (9)
  - Dandruff [Unknown]
  - Bone loss [Unknown]
  - Eye irritation [Unknown]
  - Visual impairment [Unknown]
  - Vision blurred [Unknown]
  - Feeling abnormal [Unknown]
  - Device failure [Unknown]
  - Eye pruritus [Unknown]
  - Eye disorder [Unknown]

NARRATIVE: CASE EVENT DATE: 201105
